FAERS Safety Report 9476161 (Version 1)
Quarter: 2013Q3

REPORT INFORMATION
  Report Type: Spontaneous
  Country: US (occurrence: US)
  Receive Date: 20130826
  Receipt Date: 20130826
  Transmission Date: 20140515
  Serious: Yes (Other)
  Sender: FDA-Public Use
  Company Number: US-SANOFI-AVENTIS-2013SA083504

PATIENT
  Sex: Female

DRUGS (2)
  1. SELSUN BLUE SENSITIVE SCALP [Suspect]
     Indication: AVULSION FRACTURE
     Dosage: DOSE:11 OUNCE
     Route: 065
     Dates: start: 20130715
  2. SELSUN BLUE ITCHY DRY SCALP [Suspect]
     Route: 065

REACTIONS (5)
  - Pruritus [Not Recovered/Not Resolved]
  - Application site pain [Not Recovered/Not Resolved]
  - Sunburn [Not Recovered/Not Resolved]
  - Skin exfoliation [Not Recovered/Not Resolved]
  - Drug ineffective [Unknown]
